FAERS Safety Report 4274540-2 (Version None)
Quarter: 2004Q1

REPORT INFORMATION
  Report Type: 
  Country: None (occurrence: None)
  Receive Date: 20040120
  Receipt Date: 20040120
  Transmission Date: 20041129
  Serious: Yes (Other)
  Sender: FDA-Public Use
  Company Number: None

PATIENT
  Age: 42 Year
  Sex: Female
  Weight: 72.5755 kg

DRUGS (2)
  1. AVELOX [Suspect]
     Indication: EAR INFECTION
     Dosage: 1 DAILY ORAL
     Route: 048
     Dates: start: 20040107, end: 20040109
  2. AVELOX [Suspect]
     Indication: SINUSITIS
     Dosage: 1 DAILY ORAL
     Route: 048
     Dates: start: 20040107, end: 20040109

REACTIONS (4)
  - ANXIETY [None]
  - DIZZINESS [None]
  - HYPERHIDROSIS [None]
  - TREMOR [None]
